FAERS Safety Report 9223056 (Version 1)
Quarter: 2013Q1

REPORT INFORMATION
  Report Type: Spontaneous
  Country: US (occurrence: None)
  Receive Date: 20120914
  Receipt Date: 20120914
  Transmission Date: 20140127
  Serious: Yes (Hospitalization, Other)
  Sender: FDA-Public Use
  Company Number: JPI-P-019792

PATIENT
  Age: 65 Year
  Sex: Female
  Weight: 61.69 kg

DRUGS (18)
  1. XYREM (500 MILLIGRAM/MILLILITERS, SOLUTION) (SODIUM OXYBATE) [Suspect]
     Indication: INSOMNIA
     Dosage: 4 GM (2 GM,2 IN 1 D)
     Route: 048
     Dates: start: 20120208, end: 201202
  2. ZOLPIDEM TARTRATE [Suspect]
     Indication: INSOMNIA
     Route: 048
     Dates: start: 20111221, end: 20120207
  3. VILAZODONE (UNKNOWN) [Concomitant]
  4. BUSPIRONE [Concomitant]
  5. MODAFINIL (UNKNOWN) [Concomitant]
  6. DIAZEPAM (UNKNOWN) [Concomitant]
  7. TIZANIDINE [Concomitant]
  8. OXYCODONE [Concomitant]
  9. IBUPROFEN (UNKNOWN) [Concomitant]
  10. HYDROCHYLOROTHIAZIDE [Concomitant]
  11. TIOTROPIUM [Concomitant]
  12. RABEPRAZOLE (UNKNOWN) [Concomitant]
  13. LEVOTHYROXINE [Concomitant]
  14. ALBUTEROL [Concomitant]
  15. BUDESONIDE [Concomitant]
  16. IVIG [Concomitant]
  17. VITAMINS (UNKNOWN) [Concomitant]
  18. SODIUM CHLORIDE (2 MILLILITRE(S) [Concomitant]

REACTIONS (24)
  - Accidental overdose [None]
  - Confusional state [None]
  - Respiratory rate decreased [None]
  - Dyspnoea [None]
  - Parkinsonism [None]
  - Ill-defined disorder [None]
  - Neuropathy peripheral [None]
  - Initial insomnia [None]
  - Nausea [None]
  - Decreased appetite [None]
  - Weight decreased [None]
  - Hypoaesthesia [None]
  - Hypoaesthesia oral [None]
  - Chest discomfort [None]
  - Musculoskeletal stiffness [None]
  - Muscle twitching [None]
  - Back pain [None]
  - Contusion [None]
  - Hypertension [None]
  - Headache [None]
  - Disturbance in attention [None]
  - Somnolence [None]
  - Tremor [None]
  - Madarosis [None]
